FAERS Safety Report 5187085-2 (Version None)
Quarter: 2006Q4

REPORT INFORMATION
  Report Type: 
  Country: None (occurrence: None)
  Receive Date: 20061214
  Receipt Date: 20061201
  Transmission Date: 20070319
  Serious: Yes (Life-Threatening, Hospitalization)
  Sender: FDA-Public Use
  Company Number: 2006105111

PATIENT
  Age: 76 Year
  Sex: Male
  Weight: 88 kg

DRUGS (11)
  1. SUTENT [Suspect]
     Indication: METASTATIC RENAL CELL CARCINOMA
     Dosage: 50 MG (50 MG, DAILY), ORAL
     Route: 048
     Dates: start: 20060706, end: 20060822
  2. METOPROLOL SUCCINATE [Concomitant]
  3. RAMIPRIL [Concomitant]
  4. THYROXIN (LEVOTHYROXINE SODIUM) [Concomitant]
  5. HYDROCORTISONE [Concomitant]
  6. CALCITRIOL [Concomitant]
  7. CALCIUM (CALCIUM) [Concomitant]
  8. POTASSIUM (POTASSIUM) [Concomitant]
  9. MAGNESIUM (MAGNESIUM) [Concomitant]
  10. IRESSA [Concomitant]
  11. ERLOTINIB (ERLOTINIB) [Concomitant]

REACTIONS (17)
  - ACUTE PRERENAL FAILURE [None]
  - ADRENOCORTICAL INSUFFICIENCY ACUTE [None]
  - COMA [None]
  - DIALYSIS [None]
  - GENERAL PHYSICAL HEALTH DETERIORATION [None]
  - HYPERCALCAEMIA [None]
  - HYPOPARATHYROIDISM [None]
  - MALIGNANT NEOPLASM PROGRESSION [None]
  - METASTASES TO ADRENALS [None]
  - METASTASES TO LUNG [None]
  - METASTASES TO LYMPH NODES [None]
  - METASTASES TO PANCREAS [None]
  - NAUSEA [None]
  - NOCTURIA [None]
  - POST PROCEDURAL COMPLICATION [None]
  - RENAL FAILURE ACUTE [None]
  - VOMITING [None]
